FAERS Safety Report 9046897 (Version 1)
Quarter: 2013Q1

REPORT INFORMATION
  Report Type: Spontaneous
  Country: US (occurrence: None)
  Receive Date: 20130129
  Receipt Date: 20130129
  Transmission Date: 20140127
  Serious: Yes (Other)
  Sender: FDA-Public Use
  Company Number: None

PATIENT
  Age: 70 Year
  Sex: Male
  Weight: 71.67 kg

DRUGS (10)
  1. CRESTOR [Suspect]
     Indication: BLOOD CHOLESTEROL INCREASED
     Route: 048
     Dates: start: 20081115, end: 20121228
  2. LEVOXYL [Concomitant]
  3. ALLEGRA [Concomitant]
  4. FLONASE [Concomitant]
  5. CYMBALTA [Concomitant]
  6. HYDROCODONE [Concomitant]
  7. ACETOMINOPHEN/PAMABROM/PRYLAMINE MALEATE [Concomitant]
  8. LUMIGAN [Concomitant]
  9. TRAMADOL [Concomitant]
  10. METOPROLOL [Concomitant]

REACTIONS (4)
  - Myositis [None]
  - Myalgia [None]
  - Tenderness [None]
  - Asthenia [None]
